FAERS Safety Report 16866123 (Version 1)
Quarter: 2019Q3

REPORT INFORMATION
  Report Type: Spontaneous
  Country: US (occurrence: US)
  Receive Date: 20190930
  Receipt Date: 20190930
  Transmission Date: 20191005
  Serious: No
  Sender: FDA-Public Use
  Company Number: US-ALLERGAN-1927018US

PATIENT
  Sex: Female

DRUGS (5)
  1. XTANTZA [Concomitant]
     Dosage: UNK
     Dates: start: 201906
  2. PERCOCET [Concomitant]
     Active Substance: ACETAMINOPHEN\OXYCODONE HYDROCHLORIDE
  3. BENZODIAZEPINES [Concomitant]
     Active Substance: BENZODIAZEPINE
  4. VALIUM [Concomitant]
     Active Substance: DIAZEPAM
  5. VRAYLAR [Suspect]
     Active Substance: CARIPRAZINE
     Indication: BIPOLAR DISORDER
     Dosage: UNK
     Route: 048

REACTIONS (1)
  - Alopecia [Not Recovered/Not Resolved]
